FAERS Safety Report 4526158-1 (Version None)
Quarter: 2004Q4

REPORT INFORMATION
  Report Type: 
  Country: None (occurrence: None)
  Receive Date: 20041210
  Receipt Date: 20041129
  Transmission Date: 20050328
  Serious: Yes (Life-Threatening, Hospitalization)
  Sender: FDA-Public Use
  Company Number: 2004-00858

PATIENT
  Age: 46 Year
  Sex: Female
  Weight: 75 kg

DRUGS (4)
  1. VELCADE [Suspect]
     Indication: MULTIPLE MYELOMA
     Dosage: 5.00 MG, IV BOLUS
     Route: 040
     Dates: start: 20041118, end: 20041121
  2. RENAGEL [Concomitant]
  3. PROCRIT (ERYTHROPOIETIN) [Concomitant]
  4. ANTIBIOTICS [Concomitant]

REACTIONS (5)
  - DEMYELINATION [None]
  - DYSPNOEA [None]
  - GUILLAIN-BARRE SYNDROME [None]
  - NEUROPATHY PERIPHERAL [None]
  - PARALYSIS [None]
